FAERS Safety Report 4514476-2 (Version None)
Quarter: 2004Q4

REPORT INFORMATION
  Report Type: 
  Country: None (occurrence: None)
  Receive Date: 20040928
  Receipt Date: 20040709
  Transmission Date: 20050328
  Serious: No
  Sender: FDA-Public Use
  Company Number: 04P-163-0267334-00

PATIENT
  Age: 73 Year
  Sex: Female
  Weight: 81.6475 kg

DRUGS (11)
  1. HUMIRA [Suspect]
     Indication: RHEUMATOID ARTHRITIS
     Dosage: 40 MG, 1 IN 2 WK, SUBCUTANEOUS
     Route: 058
     Dates: start: 20031001
  2. FAMOTIDINE [Concomitant]
  3. FUROSEMIDE [Concomitant]
  4. PREDNISONE [Concomitant]
  5. IRON [Concomitant]
  6. POTASSIUM CHLORIDE [Concomitant]
  7. FOLIC ACID [Concomitant]
  8. AMITRIPTYLINE HCL [Concomitant]
  9. VERAPAMIL [Concomitant]
  10. METHOTREXATE [Concomitant]
  11. LEVOTHYROXINE SODIUM [Concomitant]

REACTIONS (2)
  - ARTHRALGIA [None]
  - CONDITION AGGRAVATED [None]
